FAERS Safety Report 15711292 (Version 3)
Quarter: 2019Q1

REPORT INFORMATION
  Report Type: Spontaneous
  Country: DE (occurrence: DE)
  Receive Date: 20181211
  Receipt Date: 20190116
  Transmission Date: 20190417
  Serious: Yes (Disabling)
  Sender: FDA-Public Use
  Company Number: DE-009507513-1812DEU004039

PATIENT
  Age: 83 Year
  Sex: Male
  Weight: 86 kg

DRUGS (1)
  1. ECURAL L?SUNG, 1 MG/G L?SUNG ZUR ANWENDUNG AUF DER HAUT [Suspect]
     Active Substance: MOMETASONE FUROATE
     Indication: EAR PAIN
     Dosage: 2 DROPS (2 DROP (1/12 MILLILITRE) TWICE DAILY (2X2 DROPS DAILY INTO THE EAR); ROUTE REPORTED AS ^INT
     Route: 001

REACTIONS (10)
  - Dizziness [Not Recovered/Not Resolved]
  - Drug ineffective [Not Recovered/Not Resolved]
  - Off label use [Unknown]
  - Neck pain [Not Recovered/Not Resolved]
  - Headache [Not Recovered/Not Resolved]
  - Nasopharyngitis [Not Recovered/Not Resolved]
  - Product use in unapproved indication [Unknown]
  - Ear pruritus [Not Recovered/Not Resolved]
  - Incorrect route of product administration [Unknown]
  - Tympanic membrane perforation [Not Recovered/Not Resolved]

NARRATIVE: CASE EVENT DATE: 2018
